FAERS Safety Report 5199030-4 (Version None)
Quarter: 2006Q4

REPORT INFORMATION
  Report Type: 
  Country: None (occurrence: None)
  Receive Date: 20061016
  Receipt Date: 20060616
  Transmission Date: 20070319
  Serious: No
  Sender: FDA-Public Use
  Company Number: 2006SP002447

PATIENT
  Age: 54 Year
  Sex: Male

DRUGS (9)
  1. LUNESTA [Suspect]
     Indication: ARTHRALGIA
     Dosage: 3 MG; HS; ORAL
     Route: 048
     Dates: start: 20060601
  2. LUNESTA [Suspect]
     Indication: INSOMNIA
     Dosage: 3 MG; HS; ORAL
     Route: 048
     Dates: start: 20060601
  3. PLAVIX [Concomitant]
  4. ASPIRIN [Concomitant]
  5. GLUCOTROL [Concomitant]
  6. AVANDIA [Concomitant]
  7. AMLODIPINE [Concomitant]
  8. ATORVASTATIN CALCIUM [Concomitant]
  9. GABAPENTIN [Concomitant]

REACTIONS (1)
  - DYSGEUSIA [None]
